FAERS Safety Report 24674427 (Version 1)
Quarter: 2024Q4

REPORT INFORMATION
  Report Type: Report from Study
  Country: CA (occurrence: CA)
  Receive Date: 20241128
  Receipt Date: 20241128
  Transmission Date: 20250115
  Serious: Yes (Hospitalization)
  Sender: ROCHE
  Company Number: CA-ROCHE-10000109860

PATIENT
  Sex: Female

DRUGS (1)
  1. OCREVUS [Suspect]
     Active Substance: OCRELIZUMAB
     Indication: Relapsing-remitting multiple sclerosis
     Dosage: 300 MG AT DAY 0 AND 14, THEN 600 MG EVERY 6 MONTHS
     Route: 042
     Dates: start: 20230517

REACTIONS (6)
  - Pneumonia [Unknown]
  - Menstruation irregular [Not Recovered/Not Resolved]
  - Arthritis infective [Unknown]
  - Memory impairment [Unknown]
  - Tachycardia [Unknown]
  - Arthritis [Unknown]
